FAERS Safety Report 7122834-5 (Version None)
Quarter: 2010Q4

REPORT INFORMATION
  Report Type: 
  Country: None (occurrence: None)
  Receive Date: 20101124
  Receipt Date: 20101112
  Transmission Date: 20110411
  Serious: Yes (Hospitalization, Disabling, Other)
  Sender: FDA-Public Use
  Company Number: PHEH2007US03038

PATIENT
  Sex: Female
  Weight: 74.376 kg

DRUGS (45)
  1. AREDIA [Suspect]
     Dosage: 90 MG, UNK
     Dates: end: 20060725
  2. AREDIA [Suspect]
     Dosage: 30 MG
  3. HYDROCHLOROTHIAZIDE [Concomitant]
  4. ZELNORM                                 /USA/ [Concomitant]
  5. TOPROL-XL [Concomitant]
     Dosage: 25 MG, QD
  6. ERLOTINIB HYDROCHLORIDE [Concomitant]
     Dosage: 150 MG, QD
  7. TYLENOL (CAPLET) [Concomitant]
  8. TARCEVA [Concomitant]
     Dosage: 150 MG, QD
  9. PHENERGAN ^AVENTIS PHARMA^ [Concomitant]
  10. DARVON [Concomitant]
     Dosage: UNK
  11. AUGMENTAN ORAL [Concomitant]
  12. ATIVAN [Concomitant]
  13. ALLEGRA [Concomitant]
  14. REGLAN [Concomitant]
  15. KEFLEX [Concomitant]
  16. ZOFRAN [Concomitant]
  17. ZITHROMAX [Concomitant]
  18. CELEXA [Concomitant]
     Dosage: 40 MG, QD
     Dates: start: 20031023
  19. INDERAL [Concomitant]
  20. DYAZIDE [Concomitant]
  21. TAMOXIFEN [Concomitant]
  22. NEOSPORIN EYE AND EAR SOLUTION [Concomitant]
  23. AVALIDE [Concomitant]
  24. SPIRONOLACTONE [Concomitant]
  25. DARVOCET-N 100 [Concomitant]
  26. XELODA [Concomitant]
  27. ALDACTONE [Concomitant]
  28. LORTAB [Concomitant]
  29. NAVELBINE [Concomitant]
  30. TAXOTERE [Concomitant]
     Indication: BREAST CANCER METASTATIC
  31. NEULASTA [Concomitant]
  32. MICRO-K [Concomitant]
     Dosage: 20 MEQ, TID
  33. ADRIAMYCIN PFS [Concomitant]
     Indication: BREAST CANCER METASTATIC
  34. CYTOXAN [Concomitant]
     Indication: BREAST CANCER METASTATIC
  35. FLUOROURACIL [Concomitant]
     Indication: BREAST CANCER METASTATIC
  36. ED-FLEX [Concomitant]
     Indication: PAIN
  37. TORADOL [Concomitant]
     Indication: PAIN
  38. DECADRON [Concomitant]
     Indication: BREAST CANCER METASTATIC
     Dosage: 10 MG, UNK
  39. BUSPAR [Concomitant]
  40. GEMZAR [Concomitant]
     Indication: BREAST CANCER METASTATIC
  41. KAY CIEL DURA-TABS [Concomitant]
  42. AMBIEN [Concomitant]
     Dosage: UNK
  43. BENADRYL ^ACHE^ [Concomitant]
  44. NEXIUM [Concomitant]
     Indication: REFLUX OESOPHAGITIS
  45. SEPTRA DS [Concomitant]
     Dosage: UNK

REACTIONS (70)
  - ABDOMINAL DISCOMFORT [None]
  - ANAEMIA [None]
  - ANXIETY [None]
  - ARTHRALGIA [None]
  - ASCITES [None]
  - ASPARTATE AMINOTRANSFERASE INCREASED [None]
  - BACK PAIN [None]
  - BLOOD ALKALINE PHOSPHATASE INCREASED [None]
  - BLOOD CALCIUM DECREASED [None]
  - BLOOD CALCIUM INCREASED [None]
  - BLOOD UREA NITROGEN/CREATININE RATIO INCREASED [None]
  - BONE PAIN [None]
  - CENTRAL VENOUS CATHETERISATION [None]
  - CLOSED FRACTURE MANIPULATION [None]
  - COMPRESSION FRACTURE [None]
  - DECREASED APPETITE [None]
  - DECREASED INTEREST [None]
  - DEHYDRATION [None]
  - DIARRHOEA [None]
  - DISABILITY [None]
  - DIVERTICULUM [None]
  - DYSPNOEA [None]
  - EAR PAIN [None]
  - ENDOMETRIAL ATROPHY [None]
  - FALL [None]
  - FEMUR FRACTURE [None]
  - GENERAL PHYSICAL HEALTH DETERIORATION [None]
  - HAEMOPTYSIS [None]
  - HEADACHE [None]
  - HIP FRACTURE [None]
  - LOCALISED INFECTION [None]
  - MALAISE [None]
  - METASTASES TO BONE [None]
  - METASTASES TO LIVER [None]
  - MYOSITIS [None]
  - NASAL CONGESTION [None]
  - NEUTROPENIA [None]
  - OBSTRUCTIVE AIRWAYS DISORDER [None]
  - OEDEMA PERIPHERAL [None]
  - OESOPHAGEAL ULCER [None]
  - OESOPHAGEAL ULCER HAEMORRHAGE [None]
  - OESOPHAGITIS [None]
  - OSTEONECROSIS OF JAW [None]
  - OTITIS EXTERNA [None]
  - OTITIS MEDIA [None]
  - OVARIAN ADHESION [None]
  - PAIN [None]
  - PAIN IN EXTREMITY [None]
  - PELVIC ADHESIONS [None]
  - PHARYNGITIS [None]
  - PLEURAL EFFUSION [None]
  - PLEURITIC PAIN [None]
  - PNEUMONIA [None]
  - PNEUMONITIS [None]
  - PRODUCTIVE COUGH [None]
  - RADIOTHERAPY [None]
  - RASH [None]
  - REHABILITATION THERAPY [None]
  - SINUS BRADYCARDIA [None]
  - SINUSITIS [None]
  - THROMBOCYTOPENIA [None]
  - TOTAL LUNG CAPACITY DECREASED [None]
  - TRANSFUSION [None]
  - UMBILICAL HERNIA [None]
  - UPPER RESPIRATORY TRACT INFECTION [None]
  - URINARY TRACT INFECTION [None]
  - UTERINE LEIOMYOMA [None]
  - VENTRICULAR HYPERTROPHY [None]
  - VOCAL CORD POLYP [None]
  - WEIGHT BEARING DIFFICULTY [None]
